FAERS Safety Report 9807597 (Version 1)
Quarter: 2014Q1

REPORT INFORMATION
  Report Type: Spontaneous
  Country: US (occurrence: US)
  Receive Date: 20140110
  Receipt Date: 20140110
  Transmission Date: 20141002
  Serious: No
  Sender: FDA-Public Use
  Company Number: US-SANOFI-AVENTIS-2013SA048137

PATIENT
  Age: 80 Year
  Sex: Female
  Weight: 77 kg

DRUGS (6)
  1. PLAVIX [Suspect]
     Indication: STENT PLACEMENT
     Route: 048
  2. CALTRATE + D [Suspect]
     Indication: VITAMIN SUPPLEMENTATION
     Dates: start: 201304
  3. ASPIRIN [Suspect]
     Indication: STENT PLACEMENT
  4. TRIAMTERENE [Suspect]
     Indication: HYPERTENSION
  5. ALL OTHER THERAPEUTIC PRODUCTS [Suspect]
  6. METOPROLOL SUCCINATE [Concomitant]

REACTIONS (9)
  - Loss of consciousness [Recovering/Resolving]
  - Tinnitus [Recovering/Resolving]
  - Dysgeusia [Recovering/Resolving]
  - Burning sensation [Recovering/Resolving]
  - Ear disorder [Recovering/Resolving]
  - Hyperhidrosis [Recovering/Resolving]
  - Malaise [Unknown]
  - Choking [Unknown]
  - Nausea [Recovering/Resolving]
